FAERS Safety Report 9059823 (Version 2)
Quarter: 2013Q1

REPORT INFORMATION
  Report Type: Spontaneous
  Country: US (occurrence: US)
  Receive Date: 20130212
  Receipt Date: 20130313
  Transmission Date: 20140127
  Serious: Yes (Hospitalization, Other)
  Sender: FDA-Public Use
  Company Number: US-SANOFI-AVENTIS-2013SA010058

PATIENT
  Age: 67 Year
  Sex: Male
  Weight: 89 kg

DRUGS (12)
  1. LANTUS SOLOSTAR [Suspect]
     Indication: DIABETES MELLITUS
     Dosage: DOSE:30 UNIT(S)
     Route: 058
     Dates: start: 20111001
  2. LANTUS SOLOSTAR [Suspect]
     Indication: PANCREATECTOMY
     Dosage: DOSE:30 UNIT(S)
     Route: 058
     Dates: start: 20111001
  3. SOLOSTAR [Suspect]
     Indication: DIABETES MELLITUS
     Dates: start: 20111001
  4. SOLOSTAR [Suspect]
     Indication: PANCREATECTOMY
     Dates: start: 20111001
  5. NOVOLOG [Concomitant]
  6. INSULIN PEN NOS [Concomitant]
  7. PANCREATIC ENZYMES [Concomitant]
     Indication: PANCREATECTOMY
     Dosage: DOSE: 2 EACH MEAL
     Dates: start: 20110618
  8. HUMALOG [Concomitant]
     Indication: PANCREATECTOMY
     Dosage: 4 TIMES WITH EACH MEAL DOSE:12 UNIT(S)
     Dates: start: 20110618
  9. SODIUM BICARBONATE [Concomitant]
     Indication: RENAL FAILURE
     Dosage: DOSE: 1300 MG
     Dates: start: 20110618
  10. METOPROLOL [Concomitant]
     Indication: HYPERTENSION
     Dates: start: 20110618
  11. ASPIRIN [Concomitant]
     Indication: HYPERTENSION
     Dates: start: 20110618
  12. PANTOPRAZOLE [Concomitant]
     Indication: PANCREATECTOMY
     Dates: start: 20110618

REACTIONS (3)
  - Surgery [Unknown]
  - Blood glucose increased [Unknown]
  - Incorrect storage of drug [Unknown]
